FAERS Safety Report 6460809-X (Version None)
Quarter: 2009Q4

REPORT INFORMATION
  Report Type: 
  Country: None (occurrence: None)
  Receive Date: 20091130
  Receipt Date: 20091117
  Transmission Date: 20100525
  Serious: Yes (Death, Hospitalization, Other)
  Sender: FDA-Public Use
  Company Number: HK-PFIZER INC-2009260472

PATIENT
  Age: 83 Year
  Sex: Female

DRUGS (1)
  1. SUTENT [Suspect]
     Indication: THYROID CANCER
     Dosage: 25 MG, 1X/DAY
     Route: 048
     Dates: start: 20090526, end: 20090923

REACTIONS (13)
  - ANAEMIA [None]
  - DISEASE PROGRESSION [None]
  - DIVERTICULITIS [None]
  - DYSGEUSIA [None]
  - GASTRITIS [None]
  - MELAENA [None]
  - ORAL PAIN [None]
  - PULMONARY SEPSIS [None]
  - PYREXIA [None]
  - REFLUX OESOPHAGITIS [None]
  - THROMBOCYTOPENIA [None]
  - THYROID CANCER [None]
  - WHITE BLOOD CELL COUNT ABNORMAL [None]
